FAERS Safety Report 9301045 (Version 1)
Quarter: 2013Q2

REPORT INFORMATION
  Report Type: Spontaneous
  Country: US (occurrence: US)
  Receive Date: 20130521
  Receipt Date: 20130521
  Transmission Date: 20140414
  Serious: No
  Sender: FDA-Public Use
  Company Number: US-PFIZER INC-2013153273

PATIENT
  Age: 45 Year
  Sex: Male
  Weight: 72.56 kg

DRUGS (14)
  1. VIAGRA [Suspect]
     Indication: ERECTILE DYSFUNCTION
     Dosage: 100 MG, AS NEEDED
     Route: 048
     Dates: start: 2006
  2. DAPSONE [Concomitant]
     Dosage: UNK
  3. CLONAZEPAM [Concomitant]
     Dosage: UNK
  4. DRONABINOL [Concomitant]
     Dosage: UNK
  5. HYDROCODONE W/ACETAMINOPHEN [Concomitant]
     Dosage: UNK, 7.5/750 MG
  6. PRO-AIR [Concomitant]
     Dosage: UNK
  7. FLUCONAZOLE [Concomitant]
     Dosage: UNK
  8. PROMETHAZINE [Concomitant]
     Dosage: UNK
  9. ACYCLOVIR [Concomitant]
     Dosage: UNK
  10. AZITHROMYCIN [Concomitant]
     Dosage: UNK
  11. NEXIUM [Concomitant]
     Dosage: UNK
  12. PREZISTA [Concomitant]
     Dosage: UNK
  13. NORVIR [Concomitant]
     Dosage: UNK
  14. TRUVADA [Concomitant]
     Dosage: UNK

REACTIONS (4)
  - Dyspepsia [Unknown]
  - Headache [Unknown]
  - Drug ineffective [Unknown]
  - Suspected counterfeit product [Unknown]
